FAERS Safety Report 10230549 (Version 1)
Quarter: 2014Q2

REPORT INFORMATION
  Report Type: Spontaneous
  Country: US (occurrence: US)
  Receive Date: 20140611
  Receipt Date: 20140611
  Transmission Date: 20141212
  Serious: Yes (Other)
  Sender: FDA-Public Use
  Company Number: US-INCYTE CORPORATION-2014IN001163

PATIENT
  Sex: Female

DRUGS (8)
  1. JAKAFI [Suspect]
     Dosage: 20 MG, BID
     Route: 048
     Dates: start: 201201
  2. ALPRAZOLAM [Concomitant]
  3. CLONIDINE [Concomitant]
  4. CYCLOBENZAPRINE [Concomitant]
  5. GLIMEPIRIDE [Concomitant]
  6. LASIX                              /00032601/ [Concomitant]
  7. MECLIZINE                          /00072801/ [Concomitant]
  8. ZYRTEC [Concomitant]

REACTIONS (1)
  - Anaemia [Unknown]
